FAERS Safety Report 15219835 (Version 4)
Quarter: 2018Q4

REPORT INFORMATION
  Report Type: Report from Study
  Country: IT (occurrence: IT)
  Receive Date: 20180731
  Receipt Date: 20181011
  Transmission Date: 20190204
  Serious: Yes (Other)
  Sender: FDA-Public Use
  Company Number: IT-TEVA-2018-IT-930142

PATIENT
  Age: 74 Year
  Sex: Female

DRUGS (8)
  1. DIBASE [Concomitant]
     Active Substance: CHOLECALCIFEROL
     Indication: PRODUCT USED FOR UNKNOWN INDICATION
     Dosage: 30 GTT DAILY;
     Route: 048
     Dates: start: 20160101, end: 20160619
  2. CLONIDINE. [Interacting]
     Active Substance: CLONIDINE
     Indication: HYPERTENSION
     Dosage: 450 MICROGRAM DAILY;
     Route: 048
     Dates: start: 20180501, end: 20180619
  3. BISOPROLOL FUMARATE. [Suspect]
     Active Substance: BISOPROLOL FUMARATE
     Indication: HYPERTENSION
     Dosage: 3.75 MILLIGRAM DAILY;
     Route: 048
     Dates: start: 20160101, end: 20160619
  4. CARDICOR 3,75 MG COMPRESSE RIVESTITE CON FILM [Suspect]
     Active Substance: BISOPROLOL
     Indication: HYPERTENSION
     Dosage: 3.75 MILLIGRAM DAILY;
     Route: 048
     Dates: start: 20160101, end: 20180619
  5. ASPIRINETTA [Concomitant]
     Active Substance: ASPIRIN
     Indication: PRODUCT USED FOR UNKNOWN INDICATION
     Dosage: 100 MILLIGRAM DAILY;
     Route: 048
     Dates: start: 20160101, end: 20180619
  6. SIMVASTATIN. [Concomitant]
     Active Substance: SIMVASTATIN
     Indication: PRODUCT USED FOR UNKNOWN INDICATION
     Dosage: 20 MILLIGRAM DAILY;
     Route: 048
     Dates: start: 20160101, end: 20180619
  7. RAMIPRIL. [Interacting]
     Active Substance: RAMIPRIL
     Indication: HYPERTENSION
     Dosage: 5 MILLIGRAM DAILY;
     Route: 048
     Dates: start: 20160101, end: 20180619
  8. CATAPRESAN (CLONIDINE) [Suspect]
     Active Substance: CLONIDINE
     Indication: HYPERTENSION
     Dosage: 450 MILLIGRAM DAILY;
     Route: 048
     Dates: start: 20180501, end: 20180619

REACTIONS (5)
  - Hypertensive crisis [Recovering/Resolving]
  - Drug interaction [Unknown]
  - Skin lesion [Recovering/Resolving]
  - Pruritus [Recovering/Resolving]
  - Drug ineffective [Recovering/Resolving]

NARRATIVE: CASE EVENT DATE: 20180619
